FAERS Safety Report 8388322-3 (Version None)
Quarter: 2012Q2

REPORT INFORMATION
  Report Type: 
  Country: None (occurrence: None)
  Receive Date: 20120525
  Receipt Date: 20120523
  Transmission Date: 20120825
  Serious: Yes (Death, Life-Threatening)
  Sender: FDA-Public Use
  Company Number: US-ROXANE LABORATORIES, INC.-2012-RO-01299RO

PATIENT
  Age: 69 Year
  Sex: Female

DRUGS (5)
  1. FUROSEMIDE [Suspect]
     Indication: PORTAL HYPERTENSION
  2. LACTULOSE [Suspect]
     Indication: PORTAL HYPERTENSION
  3. DOXORUBICIN HCL [Suspect]
     Indication: BREAST CANCER METASTATIC
  4. CYCLOPHOSPHAMIDE [Suspect]
     Indication: BREAST CANCER METASTATIC
  5. SPIRONOLACTONE [Suspect]
     Indication: PORTAL HYPERTENSION

REACTIONS (3)
  - HEPATIC ENCEPHALOPATHY [None]
  - CARDIAC CIRRHOSIS [None]
  - DEATH [None]
